FAERS Safety Report 11896676 (Version 1)
Quarter: 2016Q1

REPORT INFORMATION
  Report Type: Spontaneous
  Country: US (occurrence: US)
  Receive Date: 20160107
  Receipt Date: 20160107
  Transmission Date: 20160526
  Serious: No
  Sender: FDA-Public Use
  Company Number: US-TEVA-623332USA

PATIENT
  Sex: Male

DRUGS (2)
  1. AZILECT [Suspect]
     Active Substance: RASAGILINE MESYLATE
     Indication: PARKINSON^S DISEASE
     Route: 065
     Dates: start: 201512
  2. ZOLOFT [Interacting]
     Active Substance: SERTRALINE HYDROCHLORIDE

REACTIONS (3)
  - Drug interaction [Unknown]
  - Hallucination [Unknown]
  - Thinking abnormal [Unknown]
